FAERS Safety Report 4496715-X (Version None)
Quarter: 2004Q4

REPORT INFORMATION
  Report Type: 
  Country: None (occurrence: None)
  Receive Date: 20040923
  Receipt Date: 20040709
  Transmission Date: 20050328
  Serious: Yes (Hospitalization)
  Sender: FDA-Public Use
  Company Number: WAES 0407USA00881

PATIENT

DRUGS (1)
  1. INVANZ [Suspect]
     Indication: ANTIBACTERIAL PROPHYLAXIS
     Dosage: 1 GM/DAILY/IV
     Route: 042

REACTIONS (2)
  - CONFUSIONAL STATE [None]
  - DISORIENTATION [None]
